FAERS Safety Report 22081799 (Version 1)
Quarter: 2023Q1

REPORT INFORMATION
  Report Type: Spontaneous
  Country: US (occurrence: US)
  Receive Date: 20230310
  Receipt Date: 20230310
  Transmission Date: 20230417
  Serious: Yes (Other)
  Sender: FDA-Public Use
  Company Number: US-STRIDES ARCOLAB LIMITED-2023SP001768

PATIENT
  Age: 48 Year
  Sex: Female

DRUGS (10)
  1. PREDNISOLONE [Suspect]
     Active Substance: PREDNISOLONE
     Indication: Ocular sarcoidosis
     Dosage: UNK
     Route: 065
  2. PREDNISOLONE [Suspect]
     Active Substance: PREDNISOLONE
     Indication: Pulmonary sarcoidosis
     Dosage: UNK (PREDNISOLONE-ACETATE )
     Route: 061
  3. MYCOPHENOLATE MOFETIL [Suspect]
     Active Substance: MYCOPHENOLATE MOFETIL
     Indication: Ocular sarcoidosis
     Dosage: UNK
     Route: 065
  4. MYCOPHENOLATE MOFETIL [Suspect]
     Active Substance: MYCOPHENOLATE MOFETIL
     Indication: Pulmonary sarcoidosis
  5. METHOTREXATE [Suspect]
     Active Substance: METHOTREXATE
     Indication: Ocular sarcoidosis
     Dosage: UNK
     Route: 065
  6. METHOTREXATE [Suspect]
     Active Substance: METHOTREXATE
     Indication: Pulmonary sarcoidosis
  7. ACTHAR [Suspect]
     Active Substance: CORTICOTROPIN
     Indication: Ocular sarcoidosis
     Dosage: 80 INTERNATIONAL UNIT (TWICE A WEEK) (~FOR 24 MONTHS (INTERMITTENT) ) (GEL)
     Route: 058
  8. ACTHAR [Suspect]
     Active Substance: CORTICOTROPIN
     Indication: Pulmonary sarcoidosis
  9. METHYLPREDNISOLONE [Suspect]
     Active Substance: METHYLPREDNISOLONE
     Indication: Ocular sarcoidosis
     Dosage: UNK (PER DAY) (8-10MG INTERMITTENT )
     Route: 065
  10. METHYLPREDNISOLONE [Suspect]
     Active Substance: METHYLPREDNISOLONE
     Indication: Pulmonary sarcoidosis

REACTIONS (3)
  - Hypertension [Unknown]
  - Skin hyperpigmentation [Unknown]
  - Off label use [Unknown]
